FAERS Safety Report 4944722-2 (Version None)
Quarter: 2006Q1

REPORT INFORMATION
  Report Type: 
  Country: None (occurrence: None)
  Receive Date: 20060123
  Receipt Date: 20051108
  Transmission Date: 20060701
  Serious: Yes (Life-Threatening, Other)
  Sender: FDA-Public Use
  Company Number: 2005142198

PATIENT
  Age: 19 Year
  Sex: Male

DRUGS (1)
  1. RELPAX [Suspect]
     Indication: MIGRAINE
     Dosage: 80 MG (40 MG), ORAL
     Route: 048
     Dates: start: 20041016, end: 20041017

REACTIONS (1)
  - MYOCARDIAL INFARCTION [None]
